FAERS Safety Report 7971044-8 (Version None)
Quarter: 2011Q4

REPORT INFORMATION
  Report Type: 
  Country: None (occurrence: None)
  Receive Date: 20111212
  Receipt Date: 20111212
  Transmission Date: 20120403
  Serious: Yes (Other)
  Sender: FDA-Public Use
  Company Number: None

PATIENT
  Age: 75 Year
  Sex: Male
  Weight: 81.646 kg

DRUGS (2)
  1. SPIRONOLACTONE [Suspect]
     Indication: LOCALISED OEDEMA
     Dosage: 12.5 OR 25 MG
     Route: 048
     Dates: start: 20110627, end: 20111206
  2. SPIRONOLACTONE [Suspect]
     Indication: OEDEMA PERIPHERAL
     Dosage: 12.5 OR 25 MG
     Route: 048
     Dates: start: 20110627, end: 20111206

REACTIONS (3)
  - NIPPLE DISORDER [None]
  - BREAST MASS [None]
  - NIPPLE PAIN [None]
